FAERS Safety Report 26063751 (Version 2)
Quarter: 2025Q4

REPORT INFORMATION
  Report Type: Report from Study
  Country: US (occurrence: US)
  Receive Date: 20251119
  Receipt Date: 20251230
  Transmission Date: 20260118
  Serious: Yes (Other)
  Sender: ALEXION PHARMACEUTICALS
  Company Number: US-AstraZeneca-CH-00993671A

PATIENT
  Sex: Male

DRUGS (1)
  1. RAVULIZUMAB [Suspect]
     Active Substance: RAVULIZUMAB
     Indication: Myasthenia gravis
     Route: 065

REACTIONS (6)
  - Heart rate increased [Unknown]
  - Muscle spasms [Unknown]
  - Dyspnoea [Unknown]
  - Neck pain [Unknown]
  - Chest pain [Unknown]
  - Back pain [Unknown]
